FAERS Safety Report 19000496 (Version 5)
Quarter: 2024Q3

REPORT INFORMATION
  Report Type: Spontaneous
  Country: HR (occurrence: HR)
  Receive Date: 20210311
  Receipt Date: 20240723
  Transmission Date: 20241017
  Serious: Yes (Other)
  Sender: BAUSCH AND LOMB
  Company Number: HR-002147023-NVSC2021HR042645

PATIENT
  Age: 56 Year
  Sex: Female

DRUGS (28)
  1. DICLOFENAC [Suspect]
     Active Substance: DICLOFENAC
     Indication: Product used for unknown indication
     Route: 065
  2. IBUPROFEN [Suspect]
     Active Substance: IBUPROFEN
     Indication: Product used for unknown indication
     Route: 065
  3. BILASTINE [Suspect]
     Active Substance: BILASTINE
     Indication: Product used for unknown indication
     Route: 048
  4. BILASTINE [Suspect]
     Active Substance: BILASTINE
     Route: 048
  5. ADALIMUMAB [Suspect]
     Active Substance: ADALIMUMAB\ISOPROPYL ALCOHOL
     Indication: Generalised pustular psoriasis
     Route: 058
  6. METHOTREXATE [Suspect]
     Active Substance: METHOTREXATE
     Indication: Generalised pustular psoriasis
     Route: 065
     Dates: start: 202005
  7. COSENTYX [Suspect]
     Active Substance: SECUKINUMAB
     Indication: Generalised pustular psoriasis
     Route: 065
  8. COSENTYX [Suspect]
     Active Substance: SECUKINUMAB
     Route: 065
  9. COSENTYX [Suspect]
     Active Substance: SECUKINUMAB
     Dosage: COSENTYX PRE FILLED SYRINGE
     Route: 065
  10. APREMILAST [Suspect]
     Active Substance: APREMILAST
     Indication: Generalised pustular psoriasis
     Route: 065
  11. APREMILAST [Suspect]
     Active Substance: APREMILAST
     Route: 065
  12. RISANKIZUMAB [Suspect]
     Active Substance: RISANKIZUMAB
     Indication: Generalised pustular psoriasis
     Route: 058
     Dates: start: 201912
  13. RISANKIZUMAB [Suspect]
     Active Substance: RISANKIZUMAB
     Route: 065
  14. PIOGLITAZONE [Suspect]
     Active Substance: PIOGLITAZONE
     Indication: Product used for unknown indication
     Route: 065
  15. PIOGLITAZONE [Suspect]
     Active Substance: PIOGLITAZONE
     Route: 065
  16. PIOGLITAZONE [Suspect]
     Active Substance: PIOGLITAZONE
     Route: 065
  17. LORATADINE [Suspect]
     Active Substance: LORATADINE
     Indication: Product used for unknown indication
     Route: 065
  18. KETOPROFEN [Suspect]
     Active Substance: KETOPROFEN
     Indication: Product used for unknown indication
     Route: 065
  19. DESLORATADINE [Suspect]
     Active Substance: DESLORATADINE
     Indication: Product used for unknown indication
     Dosage: 10 MG, 1+1+2 TB(TABLET)
     Route: 065
  20. DESLORATADINE [Suspect]
     Active Substance: DESLORATADINE
     Route: 065
  21. METHYLPREDNISOLONE [Suspect]
     Active Substance: METHYLPREDNISOLONE
     Indication: Generalised pustular psoriasis
     Route: 065
     Dates: start: 202008
  22. PANTOPRAZOLE [Suspect]
     Active Substance: PANTOPRAZOLE
     Indication: Product used for unknown indication
     Route: 065
  23. PANTOPRAZOLE [Suspect]
     Active Substance: PANTOPRAZOLE
     Dosage: 40 MG,QD (20 MG, BID)
     Route: 065
  24. PANTOPRAZOLE [Suspect]
     Active Substance: PANTOPRAZOLE
     Dosage: 40 MG,QD (20 MG, BID)
     Route: 065
  25. ACITRETIN [Suspect]
     Active Substance: ACITRETIN
     Indication: Generalised pustular psoriasis
     Route: 065
  26. ACITRETIN [Suspect]
     Active Substance: ACITRETIN
     Route: 065
  27. ACITRETIN [Suspect]
     Active Substance: ACITRETIN
     Route: 065
  28. CETIRIZINE HYDROCHLORIDE [Suspect]
     Active Substance: CETIRIZINE HYDROCHLORIDE
     Indication: Product used for unknown indication
     Dosage: 10 MG 1+1+2 TABLET
     Route: 065

REACTIONS (13)
  - Inflammatory bowel disease [Recovered/Resolved]
  - Face oedema [Unknown]
  - Myalgia [Unknown]
  - Arthralgia [Unknown]
  - Erythema [Recovering/Resolving]
  - Weight decreased [Recovering/Resolving]
  - Fatigue [Unknown]
  - Asthenia [Unknown]
  - Urticaria [Unknown]
  - Diarrhoea [Recovered/Resolved]
  - Faecal calprotectin increased [Unknown]
  - Drug ineffective [Unknown]
  - Product use in unapproved indication [Unknown]

NARRATIVE: CASE EVENT DATE: 20191101
